FAERS Safety Report 7999005-3 (Version None)
Quarter: 2011Q4

REPORT INFORMATION
  Report Type: 
  Country: None (occurrence: None)
  Receive Date: 20111221
  Receipt Date: 20111212
  Transmission Date: 20120403
  Serious: Yes (Other)
  Sender: FDA-Public Use
  Company Number: US-JNJFOC-20110902584

PATIENT
  Sex: Female
  Weight: 86.64 kg

DRUGS (5)
  1. ZOLPIDEM [Concomitant]
     Route: 048
  2. AMLODIPINE [Concomitant]
     Route: 048
  3. CALCIUM CARBONATE [Concomitant]
  4. REMICADE [Suspect]
     Indication: RHEUMATOID ARTHRITIS
     Route: 042
     Dates: start: 20110801
  5. LEVOTHYROXINE SODIUM [Concomitant]
     Route: 048

REACTIONS (5)
  - INFLAMMATION [None]
  - BLOOD POTASSIUM DECREASED [None]
  - CHEST PAIN [None]
  - BACK PAIN [None]
  - UPPER RESPIRATORY TRACT INFECTION [None]
